FAERS Safety Report 20617402 (Version 1)
Quarter: 2022Q1

REPORT INFORMATION
  Report Type: Spontaneous
  Country: ES (occurrence: ES)
  Receive Date: 20220321
  Receipt Date: 20220321
  Transmission Date: 20220424
  Serious: Yes (Hospitalization)
  Sender: FDA-Public Use
  Company Number: None

PATIENT
  Age: 72 Year
  Sex: Male

DRUGS (8)
  1. BISOPROLOL [Suspect]
     Active Substance: BISOPROLOL
     Indication: Myocardial ischaemia
     Dosage: 5.0 MG C/24 H
     Route: 048
     Dates: start: 20180116, end: 20200904
  2. ACETAMINOPHEN [Concomitant]
     Active Substance: ACETAMINOPHEN
     Indication: Pain
     Dosage: 650.0 MG DECOCE
     Route: 048
     Dates: start: 20200820
  3. OMEPRAZOLE [Concomitant]
     Active Substance: OMEPRAZOLE
     Indication: Gastritis
     Dosage: 20.0 MG A-DE
     Route: 048
     Dates: start: 20180116
  4. SPIRIVA RESPIMAT [Concomitant]
     Active Substance: TIOTROPIUM BROMIDE
     Indication: Bronchitis
     Dosage: 2.0 PUFF C/24 H
     Route: 050
     Dates: start: 20180116
  5. CHOLECALCIFEROL [Concomitant]
     Active Substance: CHOLECALCIFEROL
     Indication: Product used for unknown indication
     Dosage: 1600.0 UI DE
     Route: 048
     Dates: start: 20170613
  6. Cafinitrina [Concomitant]
     Indication: Angina pectoris
     Dosage: 1.0 MG C/24 H
     Route: 060
     Dates: start: 20180116
  7. EXELON [Concomitant]
     Active Substance: RIVASTIGMINE TARTRATE
     Indication: Dementia Alzheimer^s type
     Dosage: 9.5 MG C/24 H
     Route: 062
     Dates: start: 20200408
  8. ALPRAZOLAM [Concomitant]
     Active Substance: ALPRAZOLAM
     Indication: Insomnia
     Dosage: 1.0 MG C/24 H NOC
     Route: 048
     Dates: start: 20200706

REACTIONS (1)
  - Sinus bradycardia [Recovered/Resolved]

NARRATIVE: CASE EVENT DATE: 20200904
